FAERS Safety Report 20836472 (Version 2)
Quarter: 2022Q2

REPORT INFORMATION
  Report Type: Spontaneous
  Country: IN (occurrence: IN)
  Receive Date: 20220517
  Receipt Date: 20220524
  Transmission Date: 20220721
  Serious: Yes (Other)
  Sender: FDA-Public Use
  Company Number: IN-SA-SAC20220513001146

PATIENT

DRUGS (7)
  1. RIFAMPIN [Suspect]
     Active Substance: RIFAMPIN
     Indication: Peritoneal tuberculosis
     Dosage: 10 MG/KG, QD (RELA)
  2. RIFAMPIN [Suspect]
     Active Substance: RIFAMPIN
     Dosage: 10 MG/KG, QD (RLE)
  3. LEVOFLOXACIN [Suspect]
     Active Substance: LEVOFLOXACIN
     Indication: Peritoneal tuberculosis
     Dosage: 10-15 MG/KG, QD (RELA)
  4. LEVOFLOXACIN [Suspect]
     Active Substance: LEVOFLOXACIN
     Dosage: 10-15 MG/KG (RLE)
  5. ETHAMBUTOL [Suspect]
     Active Substance: ETHAMBUTOL HYDROCHLORIDE
     Indication: Peritoneal tuberculosis
     Dosage: 15 MG/KG, QD (RELA)
  6. ETHAMBUTOL [Suspect]
     Active Substance: ETHAMBUTOL HYDROCHLORIDE
     Dosage: 15 MG/KG, QD (RLE)
  7. AMIKACIN SULFATE [Suspect]
     Active Substance: AMIKACIN SULFATE
     Indication: Peritoneal tuberculosis
     Dosage: 15 MG/KG, QD, 5 TIMES/WEEK (RELA)
     Route: 042

REACTIONS (2)
  - Autoimmune hepatitis [Unknown]
  - Hypertransaminasaemia [Unknown]
